FAERS Safety Report 13000020 (Version 4)
Quarter: 2017Q4

REPORT INFORMATION
  Report Type: Spontaneous
  Country: US (occurrence: US)
  Receive Date: 20161205
  Receipt Date: 20171102
  Transmission Date: 20180320
  Serious: No
  Sender: FDA-Public Use
  Company Number: US-ASTRAZENECA-2016SF18353

PATIENT
  Age: 23855 Day
  Sex: Male
  Weight: 81.6 kg

DRUGS (2)
  1. METFORMIN [Concomitant]
     Active Substance: METFORMIN HYDROCHLORIDE
  2. BYDUREON [Suspect]
     Active Substance: EXENATIDE
     Indication: GLUCOSE TOLERANCE IMPAIRED
     Dosage: 2 MG, DOSING UNKNOWN
     Route: 058

REACTIONS (10)
  - Visual impairment [Not Recovered/Not Resolved]
  - Wrong technique in product usage process [Unknown]
  - Drug dose omission [Unknown]
  - Injection site scar [Unknown]
  - Injection site pain [Unknown]
  - Off label use [Unknown]
  - Incorrect dose administered [Unknown]
  - Needle issue [Unknown]
  - Product use in unapproved indication [Unknown]
  - Injection site extravasation [Unknown]

NARRATIVE: CASE EVENT DATE: 20170903
